FAERS Safety Report 5705597-7 (Version None)
Quarter: 2008Q2

REPORT INFORMATION
  Report Type: 
  Country: None (occurrence: None)
  Receive Date: 20080411
  Receipt Date: 20080404
  Transmission Date: 20081010
  Serious: Yes (Hospitalization)
  Sender: FDA-Public Use
  Company Number: 2008SP006508

PATIENT
  Age: 52 Year
  Sex: Male
  Weight: 58 kg

DRUGS (4)
  1. TEMOZOLOMIDE [Suspect]
     Indication: LUNG CANCER METASTATIC
     Dosage: 255 MG; QD; PO
     Route: 048
     Dates: start: 20080225, end: 20080330
  2. IBUPROFEN [Suspect]
     Indication: ABDOMINAL PAIN
     Dosage: 400 MG; PRN; PO
     Route: 048
     Dates: start: 20080320
  3. MAGNESIUM SULPHATE AND ALUMMINUM HIDRO [Concomitant]
  4. FERRUM /00023502/ [Concomitant]

REACTIONS (3)
  - ABDOMINAL PAIN [None]
  - ASTHENIA [None]
  - CEREBRAL THROMBOSIS [None]
